FAERS Safety Report 21651866 (Version 1)
Quarter: 2022Q4

REPORT INFORMATION
  Report Type: Spontaneous
  Country: US (occurrence: US)
  Receive Date: 20221128
  Receipt Date: 20221128
  Transmission Date: 20230113
  Serious: No
  Sender: FDA-Public Use
  Company Number: US-APOTEX-2022AP014171

PATIENT
  Sex: Female

DRUGS (1)
  1. CALCITONIN SALMON [Suspect]
     Active Substance: CALCITONIN SALMON
     Indication: Product used for unknown indication
     Dosage: 2 DOSAGE FORM (1 SPRAY IN 1 NOSTRIL), QD
     Route: 045
     Dates: start: 20221004

REACTIONS (3)
  - Hypoaesthesia oral [Unknown]
  - Intranasal hypoaesthesia [Unknown]
  - Slow speech [Unknown]

NARRATIVE: CASE EVENT DATE: 20221005
